FAERS Safety Report 7121563-1 (Version None)
Quarter: 2010Q4

REPORT INFORMATION
  Report Type: 
  Country: None (occurrence: None)
  Receive Date: 20101124
  Receipt Date: 20101116
  Transmission Date: 20110411
  Serious: Yes (Disabling, Other)
  Sender: FDA-Public Use
  Company Number: US-SANOFI-AVENTIS-2010SA070404

PATIENT
  Sex: Female

DRUGS (6)
  1. LANTUS [Suspect]
     Indication: TYPE 2 DIABETES MELLITUS
     Dosage: DOSE:24 UNIT(S)
     Route: 058
  2. LANTUS [Suspect]
     Dosage: DOSE:24 UNIT(S)
     Route: 058
  3. LANTUS [Suspect]
     Dosage: DOSE:24 UNIT(S)
     Route: 058
  4. SOLOSTAR [Suspect]
     Indication: TYPE 2 DIABETES MELLITUS
  5. SOLOSTAR [Suspect]
  6. SOLOSTAR [Suspect]

REACTIONS (4)
  - ABASIA [None]
  - ARTHROPATHY [None]
  - FALL [None]
  - RENAL FAILURE [None]
